FAERS Safety Report 19352891 (Version 3)
Quarter: 2021Q3

REPORT INFORMATION
  Report Type: Report from Study
  Country: CA (occurrence: CA)
  Receive Date: 20210531
  Receipt Date: 20210712
  Transmission Date: 20211014
  Serious: Yes (Other)
  Sender: FDA-Public Use
  Company Number: CA-JNJFOC-20210131189

PATIENT
  Age: 67 Year
  Sex: Female
  Weight: 58 kg

DRUGS (5)
  1. DEXILANT [Concomitant]
     Active Substance: DEXLANSOPRAZOLE
     Indication: PRODUCT USED FOR UNKNOWN INDICATION
     Route: 065
  2. REMICADE [Suspect]
     Active Substance: INFLIXIMAB
     Indication: CROHN^S DISEASE
     Dosage: EXPIRY: 30?DEC?2023
     Route: 042
     Dates: start: 20151218
  3. REMICADE [Suspect]
     Active Substance: INFLIXIMAB
     Dosage: ON 25?MAY?2021, INFUSION DOSAGE TOO LOW, DOSE INCREASED
     Route: 042
  4. AAS [Concomitant]
     Active Substance: ASPIRIN
     Indication: PRODUCT USED FOR UNKNOWN INDICATION
     Route: 065
  5. FOSINOPRIL [Concomitant]
     Active Substance: FOSINOPRIL
     Indication: PRODUCT USED FOR UNKNOWN INDICATION
     Route: 065

REACTIONS (13)
  - Neck pain [Recovering/Resolving]
  - Off label use [Unknown]
  - Faecal volume decreased [Unknown]
  - Product use issue [Unknown]
  - Gastrointestinal fistula [Not Recovered/Not Resolved]
  - Eye inflammation [Recovered/Resolved]
  - Abdominal distension [Unknown]
  - Abdominal pain lower [Unknown]
  - Drug level abnormal [Recovering/Resolving]
  - Presyncope [Recovered/Resolved]
  - Nausea [Recovered/Resolved]
  - Intestinal stenosis [Unknown]
  - Vision blurred [Recovered/Resolved]

NARRATIVE: CASE EVENT DATE: 20151218
